FAERS Safety Report 15767314 (Version 4)
Quarter: 2020Q1

REPORT INFORMATION
  Report Type: Spontaneous
  Country: US (occurrence: US)
  Receive Date: 20181227
  Receipt Date: 20200304
  Transmission Date: 20200409
  Serious: Yes (Other)
  Sender: FDA-Public Use
  Company Number: US-BRACCO-2018US06613

PATIENT
  Age: 55 Year
  Sex: Female

DRUGS (1)
  1. CARDIOGEN-82 [Suspect]
     Active Substance: RUBIDIUM CHLORIDE RB-82
     Indication: CARDIAC STRESS TEST
     Dosage: UNK
     Dates: start: 20181217, end: 20181217

REACTIONS (3)
  - Wrong technique in product usage process [Unknown]
  - No adverse event [Unknown]
  - Radiation overdose [Unknown]

NARRATIVE: CASE EVENT DATE: 20181217
